FAERS Safety Report 6423708-5 (Version None)
Quarter: 2009Q4

REPORT INFORMATION
  Report Type: 
  Country: None (occurrence: None)
  Receive Date: 20091102
  Receipt Date: 20091027
  Transmission Date: 20100525
  Serious: Yes (Other)
  Sender: FDA-Public Use
  Company Number: US-MERCK-0906USA00278

PATIENT
  Age: 74 Year
  Sex: Female
  Weight: 65 kg

DRUGS (11)
  1. FOSAMAX [Suspect]
     Indication: OSTEOPOROSIS
     Route: 048
     Dates: start: 19990301, end: 20020701
  2. FOSAMAX [Suspect]
     Route: 048
     Dates: start: 20020701, end: 20060101
  3. SEREVENT [Concomitant]
     Route: 065
  4. ATROVENT [Concomitant]
     Route: 065
  5. ALBUTEROL [Concomitant]
     Route: 065
  6. ZYRTEC [Concomitant]
     Route: 065
  7. CHLORDIAZEPOXIDE [Concomitant]
     Route: 065
  8. VITAMINS (UNSPECIFIED) [Concomitant]
     Route: 065
  9. CALCIUM (UNSPECIFIED) [Concomitant]
     Route: 065
  10. VITAMIN D (UNSPECIFIED) [Concomitant]
     Route: 065
  11. GLUCOSAMINE [Concomitant]
     Route: 065

REACTIONS (9)
  - ADVERSE DRUG REACTION [None]
  - ALVEOLAR OSTEITIS [None]
  - OSTEOMYELITIS [None]
  - OSTEONECROSIS [None]
  - RASH [None]
  - SIALOADENITIS [None]
  - SINUSITIS [None]
  - SPINAL OSTEOARTHRITIS [None]
  - TOOTH DISORDER [None]
